FAERS Safety Report 16836101 (Version 4)
Quarter: 2020Q1

REPORT INFORMATION
  Report Type: Spontaneous
  Country: DE (occurrence: DE)
  Receive Date: 20190921
  Receipt Date: 20200320
  Transmission Date: 20200409
  Serious: Yes (Hospitalization)
  Sender: FDA-Public Use
  Company Number: DE-AUROBINDO-AUR-APL-2018-060499

PATIENT
  Sex: Female
  Weight: 89 kg

DRUGS (16)
  1. KISQALI [Suspect]
     Active Substance: RIBOCICLIB
     Dosage: 600 MILLIGRAM, (21 DAYS)
     Route: 048
     Dates: start: 20180321
  2. KISQALI [Suspect]
     Active Substance: RIBOCICLIB
     Dosage: 400 MILLIGRAM  (21 DAYS)
     Route: 048
     Dates: start: 20190522
  3. KISQALI [Suspect]
     Active Substance: RIBOCICLIB
     Dosage: 600 MILLIGRAM, (21 DAYS)
     Route: 048
     Dates: start: 20180808
  4. KISQALI [Suspect]
     Active Substance: RIBOCICLIB
     Dosage: 600 MILLIGRAM, (21 DAYS)
     Route: 048
     Dates: start: 20180613
  5. KISQALI [Suspect]
     Active Substance: RIBOCICLIB
     Dosage: 600 MILLIGRAM, (21 DAYS)
     Route: 048
     Dates: start: 20180905
  6. KISQALI [Suspect]
     Active Substance: RIBOCICLIB
     Dosage: 600 MILLIGRAM (21 DAYS)
     Route: 048
     Dates: start: 20181128
  7. KISQALI [Suspect]
     Active Substance: RIBOCICLIB
     Dosage: 600 MILLIGRAM, (21 DAYS)
     Route: 048
     Dates: start: 20180516
  8. LETROZOLE. [Suspect]
     Active Substance: LETROZOLE
     Dosage: 2.5 MILLIGRAM, ONCE A DAY
     Route: 048
     Dates: start: 20180826
  9. KISQALI [Suspect]
     Active Substance: RIBOCICLIB
     Dosage: 600 MILLIGRAM, (21 DAYS)
     Route: 048
     Dates: start: 20180418
  10. KISQALI [Suspect]
     Active Substance: RIBOCICLIB
     Dosage: 600 MILLIGRAM, (21 DAYS)
     Route: 048
     Dates: start: 20181003
  11. KISQALI [Suspect]
     Active Substance: RIBOCICLIB
     Dosage: 600 MILLIGRAM, (21 DAYS)
     Route: 048
     Dates: start: 20181031
  12. LETROZOLE. [Suspect]
     Active Substance: LETROZOLE
     Indication: BREAST CANCER METASTATIC
     Dosage: 2.5 MILLIGRAM, ONCE A DAY
     Route: 048
     Dates: start: 20180221
  13. KISQALI [Suspect]
     Active Substance: RIBOCICLIB
     Dosage: 600 MILLIGRAM, (21 DAYS)
     Route: 048
     Dates: start: 20180711
  14. KISQALI [Suspect]
     Active Substance: RIBOCICLIB
     Dosage: 600 MILLIGRAM (21 DAYS)
     Route: 048
     Dates: start: 20190130
  15. KISQALI [Suspect]
     Active Substance: RIBOCICLIB
     Indication: BREAST CANCER METASTATIC
     Dosage: 600 MILLIGRAM, (21 DAYS)
     Route: 048
     Dates: start: 20180221
  16. KISQALI [Suspect]
     Active Substance: RIBOCICLIB
     Dosage: 600 MILLIGRAM (21 DAYS)
     Route: 048
     Dates: start: 20181226

REACTIONS (6)
  - Iron deficiency [Recovered/Resolved]
  - Alopecia [Not Recovered/Not Resolved]
  - Mucosal inflammation [Recovered/Resolved]
  - Diplopia [Recovered/Resolved]
  - Inflammation [Recovered/Resolved]
  - Dermal cyst [Recovered/Resolved]

NARRATIVE: CASE EVENT DATE: 20180827
